FAERS Safety Report 9645928 (Version 1)
Quarter: 2013Q4

REPORT INFORMATION
  Report Type: Spontaneous
  Country: US (occurrence: US)
  Receive Date: 20131025
  Receipt Date: 20131025
  Transmission Date: 20140711
  Serious: No
  Sender: FDA-Public Use
  Company Number: US-ROCHE-1292938

PATIENT
  Age: 2 Year
  Sex: Female

DRUGS (1)
  1. TAMIFLU [Suspect]
     Indication: INFLUENZA
     Dosage: THE TREATMENT DOSE ABOUT HER WEIGHT IS TWICE A DAY FOR 5 DAYS
     Route: 065

REACTIONS (3)
  - Vomiting [Unknown]
  - Cough [Unknown]
  - Medication error [Unknown]
